FAERS Safety Report 4929712-8 (Version None)
Quarter: 2006Q1

REPORT INFORMATION
  Report Type: 
  Country: None (occurrence: None)
  Receive Date: 20060224
  Receipt Date: 20060214
  Transmission Date: 20060701
  Serious: Yes (Other)
  Sender: FDA-Public Use
  Company Number: 222110

PATIENT
  Age: 22 Year
  Sex: Male
  Weight: 35.1084 kg

DRUGS (3)
  1. NUTROPIN AQ [Suspect]
     Indication: GROWTH HORMONE DEFICIENCY
     Dosage: 1.2 MG QD SUBCUTANEOUS
     Route: 058
     Dates: start: 19990803, end: 20060202
  2. LEVOXYL [Concomitant]
  3. ZOLOFT [Concomitant]

REACTIONS (2)
  - RECURRENT CANCER [None]
  - THYROID GLAND CANCER [None]
